FAERS Safety Report 14992041 (Version 1)
Quarter: 2018Q2

REPORT INFORMATION
  Report Type: Spontaneous
  Country: DE (occurrence: DE)
  Receive Date: 20180608
  Receipt Date: 20180608
  Transmission Date: 20180711
  Serious: Yes (Hospitalization)
  Sender: FDA-Public Use
  Company Number: DE-TEVA-2018-DE-903164

PATIENT
  Age: 69 Year
  Sex: Female
  Weight: 68 kg

DRUGS (12)
  1. QUETIAPINE. [Concomitant]
     Active Substance: QUETIAPINE
     Dosage: 100 MILLIGRAM DAILY; 50 MG, 0-0-2-0
     Route: 048
  2. LANTUS [Concomitant]
     Active Substance: INSULIN GLARGINE
     Dosage: 14 IU (INTERNATIONAL UNIT) DAILY; 14 IE, 1-0-0-0
     Route: 058
  3. QUETIAPINE. [Suspect]
     Active Substance: QUETIAPINE
     Dosage: 25 MILLIGRAM DAILY; 25 MG, 0-0-0-1
     Route: 048
  4. NOVORAPID [Concomitant]
     Active Substance: INSULIN ASPART
     Dosage: 16 IE, 1-1-0-0
     Route: 058
  5. BROMAZEPAM [Concomitant]
     Active Substance: BROMAZEPAM
     Dosage: .25 MILLIGRAM DAILY; 6 MG, 0.25-0-0-0
     Route: 048
  6. NOVORAPID [Concomitant]
     Active Substance: INSULIN ASPART
     Dosage: 14 IU (INTERNATIONAL UNIT) DAILY; 14 IE, 0-0-1-0
     Route: 058
  7. ASPIRIN. [Concomitant]
     Active Substance: ASPIRIN
     Dosage: 100 MG, 0-1-0-0
     Route: 048
  8. PANTOPRAZOL [Concomitant]
     Active Substance: PANTOPRAZOLE SODIUM
     Dosage: 40 MILLIGRAM DAILY; 40 MG, 1-0-0-0
     Route: 048
  9. VIANI FORTE DISKUS [Concomitant]
     Active Substance: FLUTICASONE PROPIONATE\SALMETEROL XINAFOATE
     Dosage: BEI BEDARF
     Route: 048
  10. DOCITON [Concomitant]
     Active Substance: PROPRANOLOL HYDROCHLORIDE
     Dosage: 40 MILLIGRAM DAILY; 20 MG, 1-1-0-0
     Route: 048
  11. BIPERIDEN [Concomitant]
     Active Substance: BIPERIDEN
     Dosage: 2 MG, 1-0-0-0
     Route: 048
  12. ABILIFY [Concomitant]
     Active Substance: ARIPIPRAZOLE
     Dosage: 10 MILLIGRAM DAILY; 10 MG, 1-0-0-0
     Route: 048

REACTIONS (2)
  - Dyspnoea [Recovering/Resolving]
  - Swollen tongue [Recovering/Resolving]

NARRATIVE: CASE EVENT DATE: 20150930
